FAERS Safety Report 6957997-5 (Version None)
Quarter: 2010Q3

REPORT INFORMATION
  Report Type: 
  Country: None (occurrence: None)
  Receive Date: 20100830
  Receipt Date: 20100830
  Transmission Date: 20110219
  Serious: Yes (Hospitalization, Other)
  Sender: FDA-Public Use
  Company Number: None

PATIENT
  Age: 56 Year
  Sex: Male
  Weight: 117.9352 kg

DRUGS (2)
  1. LAMOTRIGINE [Suspect]
     Indication: DEPRESSION
     Dosage: BEGIN WITH 1 DAILY FOR 6 DAYS DAILY PO
     Route: 048
     Dates: start: 20100422, end: 20100610
  2. LAMOTRIGINE [Suspect]
     Indication: DEPRESSION
     Dosage: 1 TABLET DAILY PO
     Route: 048

REACTIONS (12)
  - ANXIETY [None]
  - DEAFNESS [None]
  - DEPRESSION [None]
  - DIZZINESS [None]
  - FATIGUE [None]
  - HEADACHE [None]
  - IRRITABILITY [None]
  - NAUSEA [None]
  - SUICIDAL BEHAVIOUR [None]
  - SUICIDAL IDEATION [None]
  - UNEVALUABLE EVENT [None]
  - WITHDRAWAL SYNDROME [None]
